FAERS Safety Report 11561026 (Version 1)
Quarter: 2015Q3

REPORT INFORMATION
  Report Type: Spontaneous
  Country: US (occurrence: US)
  Receive Date: 20150916
  Receipt Date: 20150916
  Transmission Date: 20151125
  Serious: No
  Sender: FDA-Public Use
  Company Number: US-ELI_LILLY_AND_COMPANY-US200810003831

PATIENT
  Age: 52 Year
  Sex: Female

DRUGS (1)
  1. FORTEO [Suspect]
     Active Substance: TERIPARATIDE
     Indication: OSTEOPOROSIS
     Dosage: 20 UG, DAILY (1/D)
     Dates: start: 20080727

REACTIONS (5)
  - Dizziness [Recovering/Resolving]
  - Pallor [Unknown]
  - Bone density decreased [Recovering/Resolving]
  - Nausea [Recovering/Resolving]
  - Retching [Unknown]

NARRATIVE: CASE EVENT DATE: 20080727
